FAERS Safety Report 25451409 (Version 1)
Quarter: 2025Q2

REPORT INFORMATION
  Report Type: Spontaneous
  Country: CA (occurrence: CA)
  Receive Date: 20250618
  Receipt Date: 20250618
  Transmission Date: 20250717
  Serious: Yes (Disabling)
  Sender: ORGANON
  Company Number: CA-ORGANON-O2506CAN001403

PATIENT
  Age: 50 Year
  Sex: Male
  Weight: 72.57 kg

DRUGS (1)
  1. REMERON [Suspect]
     Active Substance: MIRTAZAPINE
     Indication: Drug rehabilitation
     Dosage: 15 MILLIGRAM, 1 EVERY 1 DAYS
     Route: 048

REACTIONS (4)
  - Drug dependence [Unknown]
  - Drug ineffective [Unknown]
  - Erectile dysfunction [Unknown]
  - Headache [Unknown]
